FAERS Safety Report 5743058-X (Version None)
Quarter: 2008Q2

REPORT INFORMATION
  Report Type: 
  Country: None (occurrence: None)
  Receive Date: 20080516
  Receipt Date: 20071205
  Transmission Date: 20081010
  Serious: Yes (Hospitalization)
  Sender: FDA-Public Use
  Company Number: 2007S1000572

PATIENT
  Age: 75 Year
  Sex: Male

DRUGS (6)
  1. CUBICIN [Suspect]
     Indication: STAPHYLOCOCCAL BACTERAEMIA
     Dosage: 500 MG;Q24H;IV
     Route: 042
  2. COUMADIN [Concomitant]
  3. GENTAMICIN [Concomitant]
  4. RIFAMPIN [Concomitant]
  5. VANCOMYCIN HCL [Concomitant]
  6. LINEZOLID [Concomitant]

REACTIONS (3)
  - BLOOD CULTURE POSITIVE [None]
  - DRUG INEFFECTIVE FOR UNAPPROVED INDICATION [None]
  - MYOCARDIAC ABSCESS [None]
